FAERS Safety Report 4393359-5 (Version None)
Quarter: 2004Q3

REPORT INFORMATION
  Report Type: 
  Country: None (occurrence: None)
  Receive Date: 20040709
  Receipt Date: 20030117
  Transmission Date: 20050211
  Serious: Yes (Hospitalization)
  Sender: FDA-Public Use
  Company Number: PHBS2003JP00981

PATIENT
  Age: 36 Year
  Sex: Female

DRUGS (2)
  1. LAMISIL [Suspect]
     Indication: GENITAL CANDIDIASIS
     Dosage: 125 MG/D
     Route: 048
     Dates: start: 20021122, end: 20021216
  2. LAMISIL [Suspect]
     Route: 061
     Dates: start: 20021118

REACTIONS (10)
  - ACUTE GENERALISED EXANTHEMATOUS PUSTULOSIS [None]
  - BIOPSY [None]
  - C-REACTIVE PROTEIN INCREASED [None]
  - ERYTHEMA [None]
  - EXANTHEM [None]
  - PSORIASIS [None]
  - PYREXIA [None]
  - RASH GENERALISED [None]
  - RASH PUSTULAR [None]
  - TOXIC SKIN ERUPTION [None]
